FAERS Safety Report 16382915 (Version 1)
Quarter: 2019Q2

REPORT INFORMATION
  Report Type: Spontaneous
  Country: FR (occurrence: FR)
  Receive Date: 20190603
  Receipt Date: 20190603
  Transmission Date: 20190711
  Serious: Yes (Other)
  Sender: FDA-Public Use
  Company Number: FR-ZYDUS-037387

PATIENT
  Age: 1 Year
  Sex: Male

DRUGS (2)
  1. PAROXETINE. [Suspect]
     Active Substance: PAROXETINE
     Indication: DEPRESSION
     Route: 015
     Dates: start: 20161111, end: 20170810
  2. VALPROMIDE [Suspect]
     Active Substance: VALPROMIDE
     Indication: DEPRESSION
     Route: 015
     Dates: start: 20161111, end: 201612

REACTIONS (1)
  - Psychomotor retardation [Not Recovered/Not Resolved]

NARRATIVE: CASE EVENT DATE: 20190408
